FAERS Safety Report 7255784-4 (Version None)
Quarter: 2011Q1

REPORT INFORMATION
  Report Type: 
  Country: None (occurrence: None)
  Receive Date: 20110129
  Receipt Date: 20100826
  Transmission Date: 20110831
  Serious: No
  Sender: FDA-Public Use
  Company Number: US-ABBOTT-10P-163-0668093-00

PATIENT
  Sex: Female
  Weight: 69.008 kg

DRUGS (7)
  1. HUMIRA [Suspect]
     Indication: RHEUMATOID ARTHRITIS
     Dates: start: 20100811
  2. SOLU-MEDROL [Suspect]
     Indication: RHEUMATOID ARTHRITIS
     Dates: start: 20100811, end: 20100811
  3. ATENOLOL [Concomitant]
     Indication: HYPERTENSION
  4. LORAZEPAM [Concomitant]
     Indication: NERVOUSNESS
  5. LORTAB [Concomitant]
     Indication: PAIN
  6. AMLODIPINE [Concomitant]
     Indication: HYPERTENSION
  7. AMLODIPINE [Concomitant]
     Indication: HEART VALVE INCOMPETENCE

REACTIONS (4)
  - PAIN [None]
  - WEIGHT BEARING DIFFICULTY [None]
  - BONE PAIN [None]
  - ARTHRALGIA [None]
